FAERS Safety Report 6243221-8 (Version None)
Quarter: 2009Q2

REPORT INFORMATION
  Report Type: 
  Country: None (occurrence: None)
  Receive Date: 20090622
  Receipt Date: 20090622
  Transmission Date: 20091009
  Serious: No
  Sender: FDA-Public Use
  Company Number: None

PATIENT
  Age: 60 Year
  Sex: Female
  Weight: 62.5964 kg

DRUGS (1)
  1. REQUIP [Suspect]
     Indication: RESTLESS LEGS SYNDROME
     Dosage: 1MG NIGHTLY PO
     Route: 048
     Dates: start: 20090101, end: 20090611

REACTIONS (2)
  - ARTHRITIS [None]
  - SLEEP APNOEA SYNDROME [None]
